FAERS Safety Report 4650381-9 (Version None)
Quarter: 2005Q2

REPORT INFORMATION
  Report Type: 
  Country: None (occurrence: None)
  Receive Date: 20050429
  Receipt Date: 20050421
  Transmission Date: 20051028
  Serious: No
  Sender: FDA-Public Use
  Company Number: 2005AP02399

PATIENT
  Age: 73 Year
  Sex: Female

DRUGS (17)
  1. OMEPRAZOLE [Suspect]
     Indication: GASTRIC ULCER
     Dosage: 20 MG DAILY PO
     Route: 048
     Dates: start: 20050223, end: 20050406
  2. THEO-DUR [Concomitant]
  3. PURSENNID [Concomitant]
  4. MAGNEIUM OXIDE [Concomitant]
  5. MERISLON [Concomitant]
  6. ALUMINUM HYDROXIDE AND MAGNESIUM TRISILICATE [Concomitant]
  7. BENZALIN [Concomitant]
  8. YODEL [Concomitant]
  9. MUCOSTA [Concomitant]
  10. FLUITRAN [Concomitant]
  11. TENORMIN [Concomitant]
  12. CALBLOCK [Concomitant]
  13. ALOTEC [Concomitant]
  14. PL GRAN [Concomitant]
  15. CRAVIT [Concomitant]
  16. HUSTAZOL [Concomitant]
  17. EBASTEL [Concomitant]

REACTIONS (2)
  - NASOPHARYNGITIS [None]
  - RHABDOMYOLYSIS [None]
